FAERS Safety Report 7272949-6 (Version None)
Quarter: 2011Q1

REPORT INFORMATION
  Report Type: 
  Country: None (occurrence: None)
  Receive Date: 20110203
  Receipt Date: 20110201
  Transmission Date: 20110831
  Serious: Yes (Hospitalization, Disabling)
  Sender: FDA-Public Use
  Company Number: A0814217A

PATIENT
  Age: 47 Year
  Sex: Male

DRUGS (3)
  1. AVANDIA [Suspect]
     Dosage: 4MG TWICE PER DAY
     Route: 048
     Dates: end: 20030101
  2. AVANDAMET [Suspect]
     Route: 048
  3. AVANDARYL [Suspect]
     Route: 048

REACTIONS (6)
  - CARDIAC OPERATION [None]
  - CEREBROVASCULAR ACCIDENT [None]
  - CARDIOVASCULAR DISORDER [None]
  - MYOCARDIAL INFARCTION [None]
  - HEART VALVE INCOMPETENCE [None]
  - STENT PLACEMENT [None]
